FAERS Safety Report 17276248 (Version 1)
Quarter: 2020Q1

REPORT INFORMATION
  Report Type: Spontaneous
  Country: US (occurrence: US)
  Receive Date: 20200116
  Receipt Date: 20200116
  Transmission Date: 20200409
  Serious: Yes (Hospitalization)
  Sender: FDA-Public Use
  Company Number: US-TEVA-2020-US-1168655

PATIENT
  Age: 59 Year
  Sex: Male
  Weight: 111.4 kg

DRUGS (28)
  1. GABAPENTIN. [Concomitant]
     Active Substance: GABAPENTIN
     Indication: NEURALGIA
     Dosage: 600 MG (300 MG,2 IN 1 D)
     Route: 048
     Dates: start: 20190809
  2. AMLODIPINE-OLMESARTAN [Concomitant]
     Indication: HYPERTENSION
     Route: 048
  3. TESTOSTERONE CYPIONATE. [Concomitant]
     Active Substance: TESTOSTERONE CYPIONATE
     Indication: HORMONE REPLACEMENT THERAPY
     Dosage: 200 MG/ML (1 IN 2 WK)
     Route: 030
     Dates: start: 2019
  4. DEXAMETHASONE SODIUM PHOSPHATE. [Concomitant]
     Active Substance: DEXAMETHASONE SODIUM PHOSPHATE
     Indication: PREMEDICATION
     Route: 042
     Dates: start: 20190814
  5. ATROPINE SULFATE. [Concomitant]
     Active Substance: ATROPINE SULFATE
     Indication: PREMEDICATION
     Route: 058
     Dates: start: 20190814
  6. FLUOROURACIL. [Suspect]
     Active Substance: FLUOROURACIL
     Route: 042
     Dates: start: 20190830, end: 20190830
  7. ABBV-621 [Suspect]
     Active Substance: EFTOZANERMIN ALFA
     Dosage: 5 MG/KG DAILY; DAYS 1 AND 15 OF A 21-DAY CYCLE
     Route: 042
     Dates: start: 20190828, end: 20190828
  8. IRINOTECAN [Suspect]
     Active Substance: IRINOTECAN
     Indication: NEOPLASM
     Dosage: 12.8571  DAILY; OVER 30 TO 90 MINUTES ONCE EVERY 2 WEEKS
     Route: 042
     Dates: start: 20190814, end: 20190828
  9. FLUOROURACIL. [Suspect]
     Active Substance: FLUOROURACIL
     Route: 042
     Dates: start: 20190925
  10. FLUOROURACIL. [Suspect]
     Active Substance: FLUOROURACIL
     Route: 042
     Dates: start: 20190925
  11. FOLINIC ACID [Suspect]
     Active Substance: LEUCOVORIN
     Route: 042
     Dates: start: 20190814, end: 20190828
  12. ASPIRIN. [Concomitant]
     Active Substance: ASPIRIN
     Indication: CARDIAC DISORDER
     Route: 048
     Dates: start: 2018
  13. ATORVASTATIN CALCIUM. [Concomitant]
     Active Substance: ATORVASTATIN CALCIUM
     Indication: HYPERCHOLESTEROLAEMIA
     Route: 048
     Dates: start: 2018
  14. ABBV-621 [Suspect]
     Active Substance: EFTOZANERMIN ALFA
     Dosage: 5 MG/KG DAILY; DAYS 1 AND 15 OF A 21-DAY CYCLE
     Route: 042
     Dates: start: 20190925
  15. HYDROCODONE-ACETAMINOPHEN [Concomitant]
     Active Substance: ACETAMINOPHEN\HYDROCODONE
     Indication: TUMOUR PAIN
     Dosage: DOSE: 5-325 MG
     Route: 048
     Dates: end: 20190821
  16. NYSTATIN. [Concomitant]
     Active Substance: NYSTATIN
     Indication: MUCOSAL INFLAMMATION
     Dosage: 20 ML (5 ML,4 IN 1 D)
     Route: 048
     Dates: start: 20190821
  17. FLUOROURACIL. [Suspect]
     Active Substance: FLUOROURACIL
     Dosage: OVER 46 - 48 HOURS, ONCE EVERY TWO WEEKS
     Route: 042
     Dates: start: 20190828, end: 20190828
  18. FOLINIC ACID [Suspect]
     Active Substance: LEUCOVORIN
     Route: 042
     Dates: start: 20190925
  19. ISOSORBIDE MONONITRATE ER [Concomitant]
     Active Substance: ISOSORBIDE MONONITRATE
     Indication: HYPERTENSION
     Route: 048
     Dates: start: 2018
  20. PALONOSETRON HCL [Concomitant]
     Active Substance: PALONOSETRON HYDROCHLORIDE
     Indication: PREMEDICATION
     Route: 042
     Dates: start: 20190814
  21. FLUOROURACIL. [Suspect]
     Active Substance: FLUOROURACIL
     Dosage: OVER 46 - 48 HOURS, ONCE EVERY TWO WEEKS
     Route: 042
     Dates: start: 20190814, end: 20190816
  22. GLIMEPIRIDE. [Concomitant]
     Active Substance: GLIMEPIRIDE
     Indication: TYPE 2 DIABETES MELLITUS
     Route: 048
     Dates: start: 2017
  23. FLUOROURACIL. [Suspect]
     Active Substance: FLUOROURACIL
     Indication: NEOPLASM
     Route: 040
     Dates: start: 20190814, end: 20190814
  24. HYDROCODONE [Concomitant]
     Active Substance: HYDROCODONE
     Indication: MUSCULOSKELETAL PAIN
     Dosage: 7.5/200 MG (AS REQUIRED)
     Route: 048
     Dates: start: 201905
  25. IRINOTECAN [Suspect]
     Active Substance: IRINOTECAN
     Dosage: OVER 30 TO 90 MINUTES ONCE EVERY 2 WEEKS
     Route: 042
     Dates: start: 20190925
  26. ABBV-621 [Suspect]
     Active Substance: EFTOZANERMIN ALFA
     Dosage: 7.5 MG/KG DAILY; DAYS 1 AND 15 OF A 21-DAY CYCLE
     Route: 042
     Dates: start: 20190814, end: 20190814
  27. CARVEDILOL. [Concomitant]
     Active Substance: CARVEDILOL
     Indication: HYPERTENSION
     Dosage: 12.5 MG,2 IN 1 D
     Route: 048
     Dates: start: 2018
  28. CHLORTHALIDONE. [Concomitant]
     Active Substance: CHLORTHALIDONE
     Indication: HYPERTENSION
     Route: 048
     Dates: start: 2018

REACTIONS (2)
  - Colitis [Recovered/Resolved]
  - Neutropenia [Recovered/Resolved]

NARRATIVE: CASE EVENT DATE: 20190904
